FAERS Safety Report 8832176 (Version 1)
Quarter: 2012Q4

REPORT INFORMATION
  Report Type: 
  Country: US (occurrence: US)
  Receive Date: 20121009
  Receipt Date: 20121009
  Transmission Date: 20130627
  Serious: Yes (Death)
  Sender: FDA-Public Use
  Company Number: US-CELGENEUS-163-21880-12100727

PATIENT
  Age: 63 Year
  Sex: Male

DRUGS (4)
  1. REVLIMID [Suspect]
     Indication: PROSTATE CANCER METASTATIC
     Route: 048
  2. TEMSIROLIMUS [Concomitant]
     Indication: DYSPNEA
     Route: 065
  3. ANTIMICROBIALS [Concomitant]
     Indication: DRUG USE FOR UNKNOWN INDICATION
     Route: 065
  4. STEROIDS [Concomitant]
     Indication: DRUG USE FOR UNKNOWN INDICATION
     Dosage: high dose
     Route: 065

REACTIONS (3)
  - Lymphangiosis carcinomatosa [Fatal]
  - Dyspnoea [Recovering/Resolving]
  - Fatigue [Unknown]
